FAERS Safety Report 26148952 (Version 2)
Quarter: 2025Q4

REPORT INFORMATION
  Report Type: Spontaneous
  Country: EU (occurrence: EU)
  Receive Date: 20251212
  Receipt Date: 20251223
  Transmission Date: 20260118
  Serious: Yes (Other)
  Sender: BAUSCH AND LOMB
  Company Number: EU-BAUSCH-BH-2025-021933

PATIENT
  Age: 36 Year
  Sex: Male

DRUGS (5)
  1. VENLAFAXINE [Suspect]
     Active Substance: VENLAFAXINE HYDROCHLORIDE
     Indication: Depression
     Dosage: 300 MILLIGRAM, DAILY
     Route: 065
  2. SERTRALINE [Suspect]
     Active Substance: SERTRALINE HYDROCHLORIDE
     Indication: Depression
     Dosage: 200 MILLIGRAM, DAILY
     Route: 065
  3. TRAZODONE [Suspect]
     Active Substance: TRAZODONE HYDROCHLORIDE
     Indication: Depression
     Dosage: 300 MILLIGRAM, DAILY
     Route: 065
  4. QUETIAPINE [Suspect]
     Active Substance: QUETIAPINE
     Indication: Depression
     Dosage: 400 MILLIGRAM, DAILY
     Route: 065
  5. PREGABALIN [Suspect]
     Active Substance: PREGABALIN
     Indication: Depression
     Dosage: 150 MILLIGRAM, DAILY
     Route: 065

REACTIONS (2)
  - Drug intolerance [Unknown]
  - Drug resistance [Unknown]
